FAERS Safety Report 6874863-4 (Version None)
Quarter: 2010Q3

REPORT INFORMATION
  Report Type: 
  Country: None (occurrence: None)
  Receive Date: 20100723
  Receipt Date: 20100714
  Transmission Date: 20110219
  Serious: Yes (Hospitalization)
  Sender: FDA-Public Use
  Company Number: 7011109

PATIENT
  Age: 54 Year
  Sex: Male

DRUGS (4)
  1. REBIF [Suspect]
     Indication: RELAPSING-REMITTING MULTIPLE SCLEROSIS
     Dates: start: 20100609, end: 20100709
  2. TEGRETOL [Concomitant]
  3. MODIADAL (MODAFINIL) [Concomitant]
  4. AMLODIPINE [Concomitant]

REACTIONS (5)
  - DECREASED APPETITE [None]
  - FACIAL NEURALGIA [None]
  - HEPATIC FUNCTION ABNORMAL [None]
  - HYPOPHAGIA [None]
  - MALAISE [None]
